FAERS Safety Report 4945265-2 (Version None)
Quarter: 2006Q1

REPORT INFORMATION
  Report Type: 
  Country: None (occurrence: None)
  Receive Date: 20060117
  Receipt Date: 20050211
  Transmission Date: 20060701
  Serious: Yes (Other)
  Sender: FDA-Public Use
  Company Number: 395496

PATIENT
  Sex: Male

DRUGS (1)
  1. ROCEPHIN [Suspect]

REACTIONS (1)
  - CHOLELITHIASIS [None]
